FAERS Safety Report 10541085 (Version 3)
Quarter: 2014Q4

REPORT INFORMATION
  Report Type: Report from Study
  Country: US (occurrence: US)
  Receive Date: 20141024
  Receipt Date: 20141117
  Transmission Date: 20150529
  Serious: No
  Sender: FDA-Public Use
  Company Number: US-009507513-1407USA002402

PATIENT
  Age: 65 Year
  Sex: Female

DRUGS (1)
  1. PEMBROLIZUMAB. [Suspect]
     Active Substance: PEMBROLIZUMAB
     Indication: MALIGNANT MELANOMA
     Dosage: 2MG/KG, Q3W
     Route: 042
     Dates: start: 20140501, end: 20140625

REACTIONS (2)
  - Skin hypopigmentation [Unknown]
  - Vitiligo [Unknown]

NARRATIVE: CASE EVENT DATE: 20140625
